FAERS Safety Report 9557532 (Version 1)
Quarter: 2013Q3

REPORT INFORMATION
  Report Type: Spontaneous
  Country: US (occurrence: None)
  Receive Date: 20130726
  Receipt Date: 20130726
  Transmission Date: 20140515
  Serious: Yes (Hospitalization)
  Sender: FDA-Public Use
  Company Number: UTC-022533

PATIENT
  Sex: Female
  Weight: 60.45 kg

DRUGS (1)
  1. REMODULIN (2.5 MILLIGRAM/MILLILITERS, INJECTION FOR INFUSION) (TREPROSTINIL SODIUM) [Suspect]
     Indication: COR PULMONALE CHRONIC
     Dosage: 68.832 UG/KG (0.0478 UG/KG, 1 IN 1 MIN) INTRAVENOUS DRIP
     Route: 041
     Dates: start: 20100215

REACTIONS (1)
  - Pulmonary hypertension [None]
